FAERS Safety Report 24747313 (Version 2)
Quarter: 2024Q4

REPORT INFORMATION
  Report Type: Spontaneous
  Country: DE (occurrence: DE)
  Receive Date: 20241218
  Receipt Date: 20241218
  Transmission Date: 20250114
  Serious: Yes (Other)
  Sender: AUROBINDO
  Company Number: DE-AUROBINDO-AUR-APL-2021-000969

PATIENT
  Age: 76 Year
  Sex: Female

DRUGS (2)
  1. DOCETAXEL [Suspect]
     Active Substance: DOCETAXEL
     Indication: Metastatic bronchial carcinoma
     Dosage: 35 MILLIGRAM/SQ. METER
     Route: 065
  2. DOCETAXEL [Suspect]
     Active Substance: DOCETAXEL
     Indication: Non-small cell lung cancer stage IIIB

REACTIONS (9)
  - Ill-defined disorder [Unknown]
  - Haemorrhage [Unknown]
  - Inflammation [Unknown]
  - Pruritus [Unknown]
  - Erythema [Unknown]
  - Seborrhoeic keratosis [Not Recovered/Not Resolved]
  - Scab [Unknown]
  - Tissue infiltration [Unknown]
  - Skin haemorrhage [Unknown]

NARRATIVE: CASE EVENT DATE: 20130101
